FAERS Safety Report 15591752 (Version 1)
Quarter: 2018Q4

REPORT INFORMATION
  Report Type: Spontaneous
  Country: TH (occurrence: TH)
  Receive Date: 20181107
  Receipt Date: 20181107
  Transmission Date: 20190205
  Serious: Yes (Hospitalization)
  Sender: FDA-Public Use
  Company Number: TH-PFIZER INC-2018452620

PATIENT
  Age: 52 Year
  Sex: Female

DRUGS (1)
  1. SUTENT [Suspect]
     Active Substance: SUNITINIB MALATE
     Indication: RENAL CELL CARCINOMA
     Dosage: 50 MG/DAY (4 CONSECUTIVE WEEKS, FOLLOWED BY 2 WEEK OFF PERIOD)
     Route: 048

REACTIONS (4)
  - Pulmonary oedema [Unknown]
  - Stomatitis [Unknown]
  - Platelet count decreased [Unknown]
  - Neoplasm progression [Unknown]
